FAERS Safety Report 8185678-1 (Version None)
Quarter: 2012Q1

REPORT INFORMATION
  Report Type: 
  Country: None (occurrence: None)
  Receive Date: 20120305
  Receipt Date: 20120229
  Transmission Date: 20120608
  Serious: Yes (Disabling, Other)
  Sender: FDA-Public Use
  Company Number: US-BAYER-201041585NA

PATIENT
  Sex: Female
  Weight: 78.7 kg

DRUGS (24)
  1. MAGNEVIST [Suspect]
     Indication: IMAGING PROCEDURE
  2. GADOLINIUM IN UNSPECIFIED DRUG [Suspect]
     Dosage: UNK
     Dates: start: 20080225, end: 20080225
  3. GADOLINIUM IN UNSPECIFIED DRUG [Suspect]
     Dosage: UNK
     Dates: start: 20040604, end: 20040604
  4. VENOFER [Concomitant]
  5. ARANESP [Concomitant]
  6. GADOLINIUM IN UNSPECIFIED DRUG [Suspect]
     Indication: NUCLEAR MAGNETIC RESONANCE IMAGING
     Dosage: UNK
     Dates: start: 20020824, end: 20020824
  7. GADOLINIUM IN UNSPECIFIED DRUG [Suspect]
     Dosage: UNK
     Dates: start: 20040716, end: 20040716
  8. OPTIMARK [Suspect]
     Indication: IMAGING PROCEDURE
  9. MULTIHANCE [Suspect]
     Indication: IMAGING PROCEDURE
  10. CLONIDINE [Concomitant]
  11. METOPROLOL SUCCINATE [Concomitant]
  12. ALTACE [Concomitant]
  13. GADOLINIUM IN UNSPECIFIED DRUG [Suspect]
     Dosage: UNK
     Dates: start: 20050525, end: 20050525
  14. GADOLINIUM IN UNSPECIFIED DRUG [Suspect]
     Dosage: UNK
     Dates: start: 20080604, end: 20080604
  15. COUMADIN [Concomitant]
  16. ATENOLOL [Concomitant]
  17. OMNISCAN [Suspect]
     Indication: IMAGING PROCEDURE
  18. PROHANCE [Suspect]
     Indication: IMAGING PROCEDURE
  19. RENAGEL [Concomitant]
  20. ENALAPRIL MALEATE [Concomitant]
  21. GADOLINIUM IN UNSPECIFIED DRUG [Suspect]
     Dosage: UNK
     Dates: start: 20040517, end: 20040517
  22. EPOGEN [Concomitant]
  23. NORVASC [Concomitant]
  24. RENVELA [Concomitant]

REACTIONS (12)
  - ANXIETY [None]
  - SKIN INDURATION [None]
  - MOBILITY DECREASED [None]
  - PAIN [None]
  - SKIN TIGHTNESS [None]
  - FIBROSIS [None]
  - EMOTIONAL DISTRESS [None]
  - DEFORMITY [None]
  - COORDINATION ABNORMAL [None]
  - NEPHROGENIC SYSTEMIC FIBROSIS [None]
  - SKIN DISCOLOURATION [None]
  - ABASIA [None]
